FAERS Safety Report 7520710-7 (Version None)
Quarter: 2011Q2

REPORT INFORMATION
  Report Type: 
  Country: None (occurrence: None)
  Receive Date: 20110603
  Receipt Date: 20100819
  Transmission Date: 20111010
  Serious: Yes (Other)
  Sender: FDA-Public Use
  Company Number: US-BAYER-200813037NA

PATIENT
  Age: 18 Year
  Sex: Female
  Weight: 63.636 kg

DRUGS (6)
  1. WELLBUTRIN [Concomitant]
     Route: 065
  2. YAZ [Suspect]
     Indication: ACNE
     Dosage: ONE TABLET PER  DAY
     Route: 048
     Dates: start: 20070501, end: 20091101
  3. YAZ [Suspect]
     Indication: PREMENSTRUAL SYNDROME
  4. LIBRAX [Concomitant]
     Route: 065
  5. ZEGRIC NOS [Concomitant]
     Route: 065
  6. LEVONORGESTREL + ETHINYL ESTRADIOL [Concomitant]
     Route: 065

REACTIONS (8)
  - ABDOMINAL PAIN [None]
  - GASTROINTESTINAL DISORDER [None]
  - COLITIS [None]
  - CHOLECYSTECTOMY [None]
  - METRORRHAGIA [None]
  - DEPRESSION [None]
  - GASTRITIS [None]
  - DIARRHOEA [None]
